FAERS Safety Report 9462697 (Version 10)
Quarter: 2015Q2

REPORT INFORMATION
  Report Type: Spontaneous
  Country: US (occurrence: US)
  Receive Date: 20130816
  Receipt Date: 20150604
  Transmission Date: 20150821
  Serious: No
  Sender: FDA-Public Use
  Company Number: US-PFIZER INC-2013235753

PATIENT
  Age: 66 Year
  Sex: Female
  Weight: 75 kg

DRUGS (4)
  1. XALATAN [Suspect]
     Active Substance: LATANOPROST
     Dosage: 1GTT IN EACH EYE, 1X/DAY
     Route: 047
  2. XALATAN [Suspect]
     Active Substance: LATANOPROST
     Dosage: 1GTT IN EACH EYE, 1X/DAY
     Route: 047
  3. ARTIFICIAL TEARS [Concomitant]
     Active Substance: GLYCERIN\HYPROMELLOSES\POLYETHYLENE GLYCOL 400
     Indication: DRY EYE
     Dosage: (ONE TO TWO DROPS IN EACH EYE), AS NEEDED
  4. XALATAN [Suspect]
     Active Substance: LATANOPROST
     Indication: GLAUCOMA
     Dosage: 1GTT IN EACH EYE, 1X/DAY
     Route: 047
     Dates: start: 20100211

REACTIONS (6)
  - Product quality issue [Unknown]
  - Vitreous floaters [Unknown]
  - Eye irritation [Not Recovered/Not Resolved]
  - Periorbital disorder [Unknown]
  - Product container seal issue [Unknown]
  - Poor quality drug administered [Unknown]
